FAERS Safety Report 7815384-1 (Version None)
Quarter: 2011Q4

REPORT INFORMATION
  Report Type: 
  Country: None (occurrence: None)
  Receive Date: 20111014
  Receipt Date: 20111005
  Transmission Date: 20120403
  Serious: Yes (Hospitalization)
  Sender: FDA-Public Use
  Company Number: FR-ASTRAZENECA-2011SE60459

PATIENT
  Age: 626 Month
  Sex: Male

DRUGS (17)
  1. PREDNISONE [Concomitant]
     Dates: start: 20110811, end: 20110831
  2. ACETAMINOPHEN [Concomitant]
     Dates: start: 20110801
  3. PREDNISONE [Concomitant]
     Dates: start: 20110914
  4. ATORVASTATIN CALCIUM [Suspect]
     Route: 048
     Dates: start: 20110817, end: 20110823
  5. NEORAL [Concomitant]
     Dates: start: 20110811, end: 20110831
  6. NEORAL [Concomitant]
     Dates: start: 20110914
  7. NOVORAPID [Concomitant]
     Indication: BLOOD GLUCOSE ABNORMAL
  8. BACTRIM [Suspect]
     Route: 048
     Dates: start: 20110820, end: 20110831
  9. NICARDIPINE HCL [Concomitant]
     Dates: start: 20110801
  10. LOVENOX [Concomitant]
  11. FUNGIZONE [Concomitant]
  12. OMEPRAZOLE [Suspect]
     Route: 048
     Dates: start: 20110801, end: 20110826
  13. PREDNISONE [Concomitant]
     Dates: start: 20110831, end: 20110914
  14. NEORAL [Concomitant]
     Dates: start: 20110831, end: 20110914
  15. MYCOPHENOLATE MOFETIL (CELLCEPT) [Concomitant]
     Dates: start: 20110811
  16. RAMIPRIL [Suspect]
     Route: 048
     Dates: start: 20110801, end: 20110826
  17. VALGANCICLOVIR [Suspect]
     Route: 048
     Dates: start: 20110820, end: 20110831

REACTIONS (1)
  - HEPATITIS [None]
